FAERS Safety Report 13679619 (Version 2)
Quarter: 2017Q4

REPORT INFORMATION
  Report Type: Spontaneous
  Country: GB (occurrence: GB)
  Receive Date: 20170622
  Receipt Date: 20171023
  Transmission Date: 20180320
  Serious: Yes (Death, Hospitalization, Other)
  Sender: FDA-Public Use
  Company Number: GB-BAYER-2017-116360

PATIENT
  Age: 79 Year
  Sex: Male
  Weight: 85 kg

DRUGS (4)
  1. XOFIGO [Suspect]
     Active Substance: RADIUM RA-223 DICHLORIDE
     Indication: METASTASES TO BONE
     Dosage: 55KBQ/KG ONCE EVERY 4 WEEKS FOR 6 CYCLES
     Route: 042
     Dates: start: 20170223, end: 20170223
  2. XOFIGO [Suspect]
     Active Substance: RADIUM RA-223 DICHLORIDE
     Indication: HORMONE-REFRACTORY PROSTATE CANCER
     Dosage: 55KBQ/KG ONCE EVERY 4 WEEKS FOR 6 CYCLES
     Route: 042
     Dates: start: 20170330, end: 20170330
  3. XOFIGO [Suspect]
     Active Substance: RADIUM RA-223 DICHLORIDE
     Indication: HORMONE-REFRACTORY PROSTATE CANCER
     Dosage: 55KBQ/KG ONCE EVERY 4 WEEKS FOR 6 CYCLES
     Route: 042
     Dates: start: 20170504, end: 20170504
  4. XOFIGO [Suspect]
     Active Substance: RADIUM RA-223 DICHLORIDE
     Indication: HORMONE-REFRACTORY PROSTATE CANCER
     Dosage: 55KBQ/KG ONCE EVERY 4 WEEKS FOR 6 CYCLES
     Route: 042
     Dates: start: 20170126, end: 20170126

REACTIONS (2)
  - Neutropenic sepsis [Fatal]
  - Pancytopenia [None]
